FAERS Safety Report 11201413 (Version 1)
Quarter: 2015Q2

REPORT INFORMATION
  Report Type: Spontaneous
  Country: GB (occurrence: None)
  Receive Date: 20150617
  Receipt Date: 20150617
  Transmission Date: 20150821
  Serious: Yes (Hospitalization)
  Sender: FDA-Public Use
  Company Number: FK201502796

PATIENT
  Age: 65 Year
  Sex: Female

DRUGS (6)
  1. FUROSEMIDE (MANUFACTURER UNKNOWN) (FUROSEMIDE) (FUROSEMIDE) [Suspect]
     Active Substance: FUROSEMIDE
     Indication: PRODUCT USED FOR UNKNOWN INDICATION
  2. BECLOMETASONE (BECLOMETASONE) [Concomitant]
  3. OLANZAPINE (OLANZAPINE) [Concomitant]
     Active Substance: OLANZAPINE
  4. SALBUTAMOL (SALBUTAMOL) [Concomitant]
     Active Substance: ALBUTEROL
  5. ZOPICLONE (ZOPICLONE) [Concomitant]
     Active Substance: ZOPICLONE
  6. AMLODIPINE [Concomitant]
     Active Substance: AMLODIPINE BESYLATE

REACTIONS (3)
  - Drug diversion [None]
  - Hyponatraemia [None]
  - Intentional product misuse [None]
